FAERS Safety Report 11241009 (Version 2)
Quarter: 2015Q3

REPORT INFORMATION
  Report Type: Spontaneous
  Country: FI (occurrence: FI)
  Receive Date: 20150706
  Receipt Date: 20150729
  Transmission Date: 20151125
  Serious: Yes (Other)
  Sender: FDA-Public Use
  Company Number: FI-BAYER-2015-323439

PATIENT
  Age: 52 Year
  Sex: Female

DRUGS (4)
  1. AVELOX [Suspect]
     Active Substance: MOXIFLOXACIN HYDROCHLORIDE
     Indication: PNEUMONIA
     Dosage: 400 MG, QD
     Dates: start: 20150502, end: 20150505
  2. BURANA [Concomitant]
     Active Substance: IBUPROFEN
     Indication: PLEURITIC PAIN
     Dosage: DAILY DOSE 1800 MG
     Route: 048
     Dates: start: 20150502, end: 20150505
  3. ZINACEF [Concomitant]
     Active Substance: CEFUROXIME SODIUM
     Indication: PNEUMONIA
     Dosage: UNK
     Route: 042
     Dates: start: 20150502, end: 20150505
  4. PANADOL [PARACETAMOL] [Concomitant]
     Indication: PAIN
     Dosage: DAILY DOSE 3 G
     Dates: start: 20150502, end: 20150505

REACTIONS (3)
  - Infective tenosynovitis [None]
  - Tendon pain [Not Recovered/Not Resolved]
  - Tendonitis [Not Recovered/Not Resolved]
